FAERS Safety Report 11376328 (Version 2)
Quarter: 2016Q2

REPORT INFORMATION
  Report Type: Spontaneous
  Country: US (occurrence: US)
  Receive Date: 20150813
  Receipt Date: 20160609
  Transmission Date: 20160815
  Serious: No
  Sender: FDA-Public Use
  Company Number: US-PFIZER INC-2015266162

PATIENT
  Age: 68 Year
  Sex: Female

DRUGS (1)
  1. LYRICA [Suspect]
     Active Substance: PREGABALIN
     Indication: CUTANEOUS LUPUS ERYTHEMATOSUS
     Dosage: 150 MG, 3X/DAY
     Route: 048

REACTIONS (3)
  - Paraesthesia [Unknown]
  - Product use issue [Unknown]
  - Pain in extremity [Unknown]
